FAERS Safety Report 11069391 (Version 1)
Quarter: 2015Q2

REPORT INFORMATION
  Report Type: Spontaneous
  Country: US (occurrence: US)
  Receive Date: 20150427
  Receipt Date: 20150427
  Transmission Date: 20150821
  Serious: Yes (Other)
  Sender: FDA-Public Use
  Company Number: US-ELI_LILLY_AND_COMPANY-US201504006047

PATIENT
  Sex: Male

DRUGS (10)
  1. CARVEDILOL. [Concomitant]
     Active Substance: CARVEDILOL
     Dosage: UNK, UNKNOWN
     Route: 065
  2. LASIX [Concomitant]
     Active Substance: FUROSEMIDE
     Dosage: UNK, UNKNOWN
     Route: 065
  3. EFFIENT [Suspect]
     Active Substance: PRASUGREL HYDROCHLORIDE
     Indication: STENT PLACEMENT
     Dosage: 10 MG, UNKNOWN
     Route: 065
     Dates: start: 201408
  4. NIFEDIPINE. [Concomitant]
     Active Substance: NIFEDIPINE
  5. BABY ASPIRIN [Concomitant]
     Active Substance: ASPIRIN
     Dosage: UNK, UNKNOWN
     Route: 065
  6. GLIPIZIDE. [Concomitant]
     Active Substance: GLIPIZIDE
  7. FLAXSEED [Concomitant]
     Active Substance: FLAX SEED
  8. ISOSORBIDE [Concomitant]
     Active Substance: ISOSORBIDE
     Dosage: UNK, UNKNOWN
     Route: 065
  9. LISINOPRIL. [Concomitant]
     Active Substance: LISINOPRIL
  10. DANAMET [Concomitant]

REACTIONS (3)
  - Weight decreased [Not Recovered/Not Resolved]
  - Urine odour abnormal [Not Recovered/Not Resolved]
  - Contusion [Not Recovered/Not Resolved]

NARRATIVE: CASE EVENT DATE: 201408
